FAERS Safety Report 15350466 (Version 3)
Quarter: 2018Q4

REPORT INFORMATION
  Report Type: Spontaneous
  Country: DE (occurrence: DE)
  Receive Date: 20180905
  Receipt Date: 20181029
  Transmission Date: 20190204
  Serious: Yes (Hospitalization, Other)
  Sender: FDA-Public Use
  Company Number: DE-HETERO CORPORATE-HET2018DE00882

PATIENT
  Age: 48 Year
  Sex: Male

DRUGS (7)
  1. FAUSTAN [Concomitant]
     Active Substance: DIAZEPAM
     Indication: AGITATION
     Dosage: 10 MG, QD (AS NECESSARY)
     Route: 065
  2. LEVETIRACETAM UCB [Suspect]
     Active Substance: LEVETIRACETAM
     Dosage: UNK, QD  (INCREASED UP TO 1750 MG TWICE DAILY )
     Route: 065
  3. LEVETIRACETAM. [Suspect]
     Active Substance: LEVETIRACETAM
     Indication: SEIZURE
     Dosage: UNK
     Route: 065
  4. VIMPAT [Concomitant]
     Active Substance: LACOSAMIDE
     Dosage: 300 MG, BID
     Route: 065
  5. BRIVIACT [Suspect]
     Active Substance: BRIVARACETAM
     Indication: PRODUCT USED FOR UNKNOWN INDICATION
     Dosage: 100 MG, BID
     Route: 065
  6. VIMPAT [Concomitant]
     Active Substance: LACOSAMIDE
     Indication: SEIZURE
     Dosage: 200 MG, QD
     Route: 065
  7. LEVETIRACETAM UCB [Suspect]
     Active Substance: LEVETIRACETAM
     Indication: SEIZURE
     Dosage: 1000 MG, QD (OFF LABEL USE FOR DOSE.OFF LABEL USE FOR DOSE AND FREQUENCY)
     Route: 065

REACTIONS (10)
  - Aura [Unknown]
  - Blood pressure increased [Unknown]
  - Seizure [Unknown]
  - Palpitations [Unknown]
  - Feeling abnormal [Unknown]
  - Off label use [Unknown]
  - Petit mal epilepsy [Unknown]
  - Overdose [Unknown]
  - Nightmare [Unknown]
  - Drug ineffective [Unknown]

NARRATIVE: CASE EVENT DATE: 2015
